FAERS Safety Report 24119255 (Version 1)
Quarter: 2024Q3

REPORT INFORMATION
  Report Type: Spontaneous
  Country: US (occurrence: US)
  Receive Date: 20240722
  Receipt Date: 20240722
  Transmission Date: 20241017
  Serious: Yes (Other)
  Sender: TORRENT
  Company Number: US-TORRENT-00013675

PATIENT
  Age: 64 Year
  Sex: Female

DRUGS (1)
  1. DICHLORPHENAMIDE [Suspect]
     Active Substance: DICHLORPHENAMIDE
     Indication: Myotonia congenita
     Dosage: UNKNOWN
     Route: 065

REACTIONS (7)
  - Paralysis [Unknown]
  - Metabolic acidosis [Unknown]
  - Diarrhoea [Unknown]
  - Abdominal pain upper [Unknown]
  - Headache [Unknown]
  - Muscular weakness [Unknown]
  - Product substitution issue [Unknown]
